FAERS Safety Report 4833762-X (Version None)
Quarter: 2006Q1

REPORT INFORMATION
  Report Type: 
  Country: None (occurrence: None)
  Receive Date: 20051118
  Receipt Date: 20051118
  Transmission Date: 20060701
  Serious: Yes (Hospitalization, Other)
  Sender: FDA-Public Use
  Company Number: None

PATIENT
  Age: 39 Year
  Sex: Female
  Weight: 53.0709 kg

DRUGS (1)
  1. DEPO-PROVERA SUSPENSION/INJ [Suspect]
     Indication: CONTRACEPTION
     Dosage: EVERY 3 MOS.  IM
     Route: 030
     Dates: start: 19930901, end: 20040520

REACTIONS (12)
  - AMENORRHOEA [None]
  - ASTHENIA [None]
  - BALANCE DISORDER [None]
  - GAIT DISTURBANCE [None]
  - HIP FRACTURE [None]
  - JOINT RANGE OF MOTION DECREASED [None]
  - LOWER LIMB DEFORMITY [None]
  - MOBILITY DECREASED [None]
  - OSTEOPENIA [None]
  - OSTEOPOROSIS [None]
  - POST PROCEDURAL COMPLICATION [None]
  - STRESS FRACTURE [None]
